FAERS Safety Report 25396238 (Version 1)
Quarter: 2025Q2

REPORT INFORMATION
  Report Type: Spontaneous
  Country: CN (occurrence: CN)
  Receive Date: 20250604
  Receipt Date: 20250604
  Transmission Date: 20250717
  Serious: Yes (Other)
  Sender: MYLAN
  Company Number: CN-MYLANLABS-2025M1046577

PATIENT
  Age: 35 Year
  Sex: Female

DRUGS (4)
  1. REVATIO [Suspect]
     Active Substance: SILDENAFIL CITRATE
     Indication: Pulmonary hypertension
     Dosage: 25 MILLIGRAM, BID
     Dates: start: 20250529
  2. REVATIO [Suspect]
     Active Substance: SILDENAFIL CITRATE
     Dosage: 25 MILLIGRAM, BID
     Route: 065
     Dates: start: 20250529
  3. REVATIO [Suspect]
     Active Substance: SILDENAFIL CITRATE
     Dosage: 25 MILLIGRAM, BID
     Route: 065
     Dates: start: 20250529
  4. REVATIO [Suspect]
     Active Substance: SILDENAFIL CITRATE
     Dosage: 25 MILLIGRAM, BID
     Dates: start: 20250529

REACTIONS (1)
  - Facial paralysis [Unknown]

NARRATIVE: CASE EVENT DATE: 20250529
